FAERS Safety Report 5596991-6 (Version None)
Quarter: 2008Q1

REPORT INFORMATION
  Report Type: 
  Country: None (occurrence: None)
  Receive Date: 20080121
  Receipt Date: 20080118
  Transmission Date: 20080703
  Serious: Yes (Hospitalization, Other)
  Sender: FDA-Public Use
  Company Number: FR-ELI_LILLY_AND_COMPANY-FR200801003705

PATIENT
  Age: 30 Year
  Sex: Female
  Weight: 55 kg

DRUGS (2)
  1. ZYPREXA [Suspect]
     Indication: SCHIZOPHRENIA, PARANOID TYPE
     Dosage: 5 MG, DAILY (1/D)
     Route: 048
     Dates: start: 20010101
  2. ZYBAN [Interacting]
     Indication: SMOKING CESSATION THERAPY
     Dosage: 150 MG, DAILY (1/D)
     Route: 048
     Dates: start: 20071125, end: 20071128

REACTIONS (4)
  - DRUG INTERACTION [None]
  - LEGAL PROBLEM [None]
  - MANIA [None]
  - SCHIZOPHRENIA [None]
